FAERS Safety Report 5721893-1 (Version None)
Quarter: 2008Q2

REPORT INFORMATION
  Report Type: 
  Country: None (occurrence: None)
  Receive Date: 20080429
  Receipt Date: 20080417
  Transmission Date: 20081010
  Serious: Yes (Other)
  Sender: FDA-Public Use
  Company Number: FR-PFIZER INC-2008015034

PATIENT
  Sex: Female

DRUGS (8)
  1. NEURONTIN [Suspect]
     Indication: MENINGIOMA
     Dosage: DAILY DOSE:600MG
     Route: 048
  2. NEURONTIN [Suspect]
     Indication: EPILEPSY
  3. ZOCOR [Suspect]
     Route: 048
  4. ODRIK [Suspect]
     Indication: HYPERTENSION
     Dosage: DAILY DOSE:4MG
     Route: 048
  5. TENORDATE [Concomitant]
     Route: 048
  6. ALPRAZOLAM [Concomitant]
     Indication: ANXIETY
     Route: 048
  7. PLAVIX [Concomitant]
     Indication: CEREBROVASCULAR ACCIDENT
     Route: 048
  8. PROTHIADEN [Concomitant]
     Indication: ANXIETY
     Route: 048

REACTIONS (1)
  - BLOOD CREATINE PHOSPHOKINASE INCREASED [None]
